FAERS Safety Report 26051631 (Version 1)
Quarter: 2025Q4

REPORT INFORMATION
  Report Type: Spontaneous
  Country: US (occurrence: US)
  Receive Date: 20251117
  Receipt Date: 20251117
  Transmission Date: 20260118
  Serious: Yes (Hospitalization, Other)
  Sender: ACCORD
  Company Number: US-Accord-513239

PATIENT
  Weight: 1.58 kg

DRUGS (3)
  1. CISPLATIN [Suspect]
     Active Substance: CISPLATIN
     Dosage: 2 CYCLES
     Route: 064
  2. GEMCITABINE [Suspect]
     Active Substance: GEMCITABINE
     Dosage: 2 CYCLES
     Route: 064
  3. MS CONTIN [Suspect]
     Active Substance: MORPHINE SULFATE
     Route: 064

REACTIONS (2)
  - Foetal exposure during pregnancy [Unknown]
  - Sepsis [Unknown]
